FAERS Safety Report 18617649 (Version 1)
Quarter: 2020Q4

REPORT INFORMATION
  Report Type: Spontaneous
  Country: US (occurrence: US)
  Receive Date: 20201214
  Receipt Date: 20201214
  Transmission Date: 20210114
  Serious: Yes (Death)
  Sender: FDA-Public Use
  Company Number: None

PATIENT
  Age: 26 Year
  Sex: Male

DRUGS (8)
  1. ALBUTEROL. [Concomitant]
     Active Substance: ALBUTEROL
  2. DEXAMETHASONE. [Concomitant]
     Active Substance: DEXAMETHASONE
  3. IPRALROPIUM [Concomitant]
  4. LEVETIRACETA [Concomitant]
     Active Substance: LEVETIRACETAM
  5. NYSTATIN. [Concomitant]
     Active Substance: NYSTATIN
  6. VOTRIENT [Suspect]
     Active Substance: PAZOPANIB HYDROCHLORIDE
     Indication: MALIGNANT CONNECTIVE TISSUE NEOPLASM
     Route: 048
     Dates: start: 20201001
  7. LORAZEPAM. [Concomitant]
     Active Substance: LORAZEPAM
  8. SUCRALFATE. [Concomitant]
     Active Substance: SUCRALFATE

REACTIONS (1)
  - Death [None]

NARRATIVE: CASE EVENT DATE: 20201213
